FAERS Safety Report 7860071-7 (Version None)
Quarter: 2011Q4

REPORT INFORMATION
  Report Type: 
  Country: None (occurrence: None)
  Receive Date: 20111025
  Receipt Date: 20111014
  Transmission Date: 20120403
  Serious: Yes (Hospitalization)
  Sender: FDA-Public Use
  Company Number: 2011SP030602

PATIENT
  Age: 31 Year
  Sex: Female
  Weight: 68.0396 kg

DRUGS (1)
  1. NUVARING [Suspect]
     Indication: CONTRACEPTION
     Dosage: ;QM;
     Dates: start: 20080326, end: 20090701

REACTIONS (5)
  - SOMNOLENCE [None]
  - TRANSVERSE SINUS THROMBOSIS [None]
  - ARACHNOID CYST [None]
  - CEREBRAL THROMBOSIS [None]
  - SUBARACHNOID HAEMORRHAGE [None]
